FAERS Safety Report 13166717 (Version 1)
Quarter: 2017Q1

REPORT INFORMATION
  Report Type: Spontaneous
  Country: TR (occurrence: None)
  Receive Date: 20170130
  Receipt Date: 20170130
  Transmission Date: 20170428
  Serious: Yes (Hospitalization, Other)
  Sender: FDA-Public Use
  Company Number: TR2017K0368LIT

PATIENT
  Age: 67 Year
  Sex: Female

DRUGS (2)
  1. LANSOPRAZOLE WORLD (LANSOPRAZOLE) UNKNOWN [Suspect]
     Active Substance: LANSOPRAZOLE
  2. METHOTREXATE (METHOTREXATE) INJECTION [Suspect]
     Active Substance: METHOTREXATE
     Indication: PSORIASIS

REACTIONS (12)
  - Renal impairment [None]
  - Ulcer [None]
  - Pain [None]
  - Toxicity to various agents [None]
  - Mouth ulceration [None]
  - Drug interaction [None]
  - Blood albumin decreased [None]
  - Drug dose omission [None]
  - Aspartate aminotransferase increased [None]
  - Urinary tract infection [None]
  - Pancytopenia [None]
  - Alanine aminotransferase increased [None]
